FAERS Safety Report 5661065-2 (Version None)
Quarter: 2008Q1

REPORT INFORMATION
  Report Type: 
  Country: None (occurrence: None)
  Receive Date: 20080311
  Receipt Date: 20080304
  Transmission Date: 20080703
  Serious: Yes (Hospitalization, Other)
  Sender: FDA-Public Use
  Company Number: FR-WYE-G01191808

PATIENT
  Sex: Female

DRUGS (7)
  1. EFFEXOR [Suspect]
     Indication: DEPRESSION
     Route: 048
     Dates: start: 20040101, end: 20071120
  2. EFFEXOR [Suspect]
     Dosage: 75 MG TOTAL DAILY
     Route: 048
     Dates: start: 20071121, end: 20071206
  3. FEROGRAD-500 [Concomitant]
     Indication: MINERAL SUPPLEMENTATION
     Route: 048
  4. CELECTOL [Concomitant]
     Indication: HYPERTENSION
     Route: 048
     Dates: start: 20020101
  5. KARDEGIC [Concomitant]
     Route: 048
     Dates: start: 20020101, end: 20071206
  6. GALANTAMINE HYDROBROMIDE [Suspect]
     Indication: DEMENTIA ALZHEIMER'S TYPE
     Route: 048
     Dates: start: 20020101, end: 20071206
  7. ATACAND [Suspect]
     Indication: HYPERTENSION
     Route: 048
     Dates: start: 20020101, end: 20071206

REACTIONS (12)
  - BLOOD ALBUMIN DECREASED [None]
  - CONCOMITANT DISEASE PROGRESSION [None]
  - CONFUSIONAL STATE [None]
  - DEMENTIA ALZHEIMER'S TYPE [None]
  - DEPRESSION [None]
  - GENERAL PHYSICAL HEALTH DETERIORATION [None]
  - HYPONATRAEMIA [None]
  - IMPAIRED SELF-CARE [None]
  - INFLAMMATION [None]
  - MALNUTRITION [None]
  - MENINGIOMA [None]
  - MICROCYTIC ANAEMIA [None]
